FAERS Safety Report 5029203-2 (Version None)
Quarter: 2006Q2

REPORT INFORMATION
  Report Type: 
  Country: None (occurrence: None)
  Receive Date: 20060613
  Receipt Date: 20060601
  Transmission Date: 20061013
  Serious: Yes (Death)
  Sender: FDA-Public Use
  Company Number: 225743

PATIENT
  Age: 60 Year
  Sex: Male
  Weight: 90.7 kg

DRUGS (3)
  1. AVASTIN [Suspect]
     Indication: COLON CANCER
     Dosage: 5 INTRAVENOUS
     Route: 042
     Dates: start: 20060328
  2. CAPECITABINE(CAPECITABINE) [Suspect]
     Indication: COLON CANCER
     Dosage: 42000 , QD, ORAL
     Route: 048
     Dates: start: 20060328
  3. OXALIPLATIN(OXALIPLATIN) [Suspect]
     Indication: COLON CANCER
     Dosage: 85 , INTRAVENOUS
     Route: 042
     Dates: start: 20060328

REACTIONS (2)
  - ABDOMINAL PAIN [None]
  - DIARRHOEA [None]
